FAERS Safety Report 4475909-3 (Version None)
Quarter: 2004Q4

REPORT INFORMATION
  Report Type: 
  Country: None (occurrence: None)
  Receive Date: 20041012
  Receipt Date: 20040930
  Transmission Date: 20050328
  Serious: Yes (Hospitalization, Other)
  Sender: FDA-Public Use
  Company Number: 2003188569US

PATIENT
  Age: 29 Year
  Sex: Female

DRUGS (5)
  1. DOSTINEX (CABERGOLINE)TABLET 0.25-.5 MG [Suspect]
     Indication: PITUITARY TUMOUR BENIGN
     Dosage: 0.5 MG, WEEKLY, ORAL
     Route: 048
     Dates: start: 19980513, end: 19980601
  2. DOSTINEX REGIMEN #2 [Suspect]
     Dosage: 0.5 MG, WEEKLY, ORAL
     Route: 048
     Dates: start: 19990301, end: 19990101
  3. DOSTINEX REGIMEN #3 [Suspect]
     Dosage: 0.5 MG, WEEKLY, ORAL
     Route: 048
     Dates: end: 20000101
  4. XANAX [Concomitant]
  5. PREDNISONE [Concomitant]

REACTIONS (29)
  - ABORTION SPONTANEOUS [None]
  - ADENOMYOSIS [None]
  - BENIGN UTERINE NEOPLASM [None]
  - BLOOD HUMAN CHORIONIC GONADOTROPIN POSITIVE [None]
  - CAESAREAN SECTION [None]
  - CERVICAL DYSPLASIA [None]
  - CERVICITIS [None]
  - CERVIX CARCINOMA STAGE 0 [None]
  - CERVIX CARCINOMA STAGE III [None]
  - DRUG INEFFECTIVE [None]
  - DYSMENORRHOEA [None]
  - ECTOPIC PREGNANCY [None]
  - ENDOMETRIOSIS [None]
  - FALLOPIAN TUBE CYST [None]
  - GASTROINTESTINAL DISORDER [None]
  - IMPAIRED WORK ABILITY [None]
  - INADEQUATE ANALGESIA [None]
  - METRORRHAGIA [None]
  - MUSCLE CRAMP [None]
  - OVARIAN CYST [None]
  - PAIN [None]
  - PELVIC PAIN [None]
  - PELVIC PERITONEAL ADHESIONS [None]
  - POST PROCEDURAL COMPLICATION [None]
  - PREGNANCY [None]
  - SCAR [None]
  - SMEAR CERVIX ABNORMAL [None]
  - UTERINE CERVICAL SQUAMOUS METAPLASIA [None]
  - UTERINE ENLARGEMENT [None]
